FAERS Safety Report 12946764 (Version 1)
Quarter: 2016Q4

REPORT INFORMATION
  Report Type: Spontaneous
  Country: US (occurrence: US)
  Receive Date: 20161116
  Receipt Date: 20161116
  Transmission Date: 20170207
  Serious: Yes (Other)
  Sender: FDA-Public Use
  Company Number: US-TEVA-686099USA

PATIENT
  Sex: Male
  Weight: 95.34 kg

DRUGS (2)
  1. FENTANYL. [Suspect]
     Active Substance: FENTANYL
     Dosage: 25 MCG 5
     Route: 065
     Dates: start: 201604
  2. ALPRAZOLAM. [Suspect]
     Active Substance: ALPRAZOLAM
     Indication: ANXIETY
     Route: 065
     Dates: start: 201604

REACTIONS (3)
  - Pain [Unknown]
  - Somnolence [Unknown]
  - Drug dependence [Unknown]
